FAERS Safety Report 5550659-0 (Version None)
Quarter: 2007Q4

REPORT INFORMATION
  Report Type: 
  Country: None (occurrence: None)
  Receive Date: 20071212
  Receipt Date: 20070507
  Transmission Date: 20080405
  Serious: No
  Sender: FDA-Public Use
  Company Number: US-AMGEN-KDL223551

PATIENT
  Sex: Female

DRUGS (1)
  1. ENBREL [Suspect]
     Indication: RHEUMATOID ARTHRITIS
     Route: 058
     Dates: start: 20061101

REACTIONS (9)
  - BREAST SWELLING [None]
  - HERPES ZOSTER [None]
  - LIMB INJURY [None]
  - LOCALISED INFECTION [None]
  - NEUROPATHY [None]
  - OEDEMA PERIPHERAL [None]
  - PAIN [None]
  - POST HERPETIC NEURALGIA [None]
  - STAPHYLOCOCCAL INFECTION [None]
